FAERS Safety Report 8060408 (Version 2)
Quarter: 2014Q3

REPORT INFORMATION
  Report Type: Spontaneous
  Country: US (occurrence: US)
  Receive Date: 20110729
  Receipt Date: 20140730
  Transmission Date: 20150326
  Serious: No
  Sender: FDA-Public Use
  Company Number: US-GLAXOSMITHKLINE-A0920711A

PATIENT
  Age: 66 Year
  Sex: Female

DRUGS (8)
  1. SUTENT [Concomitant]
     Active Substance: SUNITINIB MALATE
  2. NORTRIPTYLINE [Concomitant]
     Active Substance: NORTRIPTYLINE
  3. ALEVE [Concomitant]
     Active Substance: NAPROXEN SODIUM
  4. ADVIL SINUS [Concomitant]
  5. IMITREX [Suspect]
     Active Substance: SUMATRIPTAN\SUMATRIPTAN SUCCINATE
     Indication: MIGRAINE
     Route: 048
  6. ATENOLOL. [Concomitant]
     Active Substance: ATENOLOL
  7. SUMATRIPTAN SUCCINATE. [Suspect]
     Active Substance: SUMATRIPTAN SUCCINATE
     Indication: MIGRAINE
     Dosage: 100MG AS REQUIRED
     Route: 048
  8. VITAMINS [Concomitant]
     Active Substance: VITAMINS

REACTIONS (8)
  - Drug ineffective [Unknown]
  - Adverse drug reaction [Unknown]
  - Muscle tightness [Unknown]
  - Fatigue [Unknown]
  - Therapeutic response decreased [Unknown]
  - Burning sensation [Unknown]
  - Mental impairment [Unknown]
  - Feeling abnormal [Unknown]
